FAERS Safety Report 21739689 (Version 1)
Quarter: 2022Q4

REPORT INFORMATION
  Report Type: Spontaneous
  Country: US (occurrence: None)
  Receive Date: 20221215
  Receipt Date: 20221215
  Transmission Date: 20230113
  Serious: No
  Sender: FDA-Public Use
  Company Number: None

PATIENT
  Sex: Male

DRUGS (1)
  1. RASUVO [Suspect]
     Active Substance: METHOTREXATE SODIUM
     Indication: Ankylosing spondylitis
     Dosage: OTHER STRENGTH : 7.5MG/.15;?FREQUENCY : WEEKLY;?
     Route: 058
     Dates: start: 20220920

REACTIONS (1)
  - Condition aggravated [None]
